FAERS Safety Report 8974400 (Version 1)
Quarter: 2012Q4

REPORT INFORMATION
  Report Type: Spontaneous
  Country: US (occurrence: None)
  Receive Date: 20121217
  Receipt Date: 20121217
  Transmission Date: 20130627
  Serious: Yes (Other)
  Sender: FDA-Public Use
  Company Number: None

PATIENT
  Age: 29 Year
  Sex: Female
  Weight: 82.56 kg

DRUGS (1)
  1. NEXPLANON [Suspect]
     Indication: BIRTH CONTROL
     Dates: start: 20120729, end: 20121214

REACTIONS (13)
  - Implant site infection [None]
  - Mood swings [None]
  - Family stress [None]
  - Social problem [None]
  - Tearfulness [None]
  - Screaming [None]
  - Migraine [None]
  - Confusional state [None]
  - Amnesia [None]
  - Depression [None]
  - Chest pain [None]
  - Implant site pain [None]
  - Anxiety [None]
